FAERS Safety Report 18454702 (Version 3)
Quarter: 2021Q4

REPORT INFORMATION
  Report Type: Report from Study
  Country: US (occurrence: US)
  Receive Date: 20201102
  Receipt Date: 20211115
  Transmission Date: 20220304
  Serious: Yes (Hospitalization)
  Sender: FDA-Public Use
  Company Number: US-JNJFOC-20201042824

PATIENT
  Age: 54 Year
  Sex: Female

DRUGS (10)
  1. SPRAVATO [Suspect]
     Active Substance: ESKETAMINE
     Indication: Depression
     Dates: start: 20200317, end: 20200317
  2. SPRAVATO [Suspect]
     Active Substance: ESKETAMINE
     Dosage: 56 MG, 27 TOTAL DOSES
     Dates: start: 20200319, end: 20201006
  3. SPRAVATO [Suspect]
     Active Substance: ESKETAMINE
     Dosage: 56 MG, MOST CURRENT DOSE
     Dates: start: 20201020, end: 20201020
  4. MIRTAZAPINE [Concomitant]
     Active Substance: MIRTAZAPINE
     Indication: Depression
     Dates: start: 20200804
  5. PROPANOLOL                         /00030001/ [Concomitant]
     Indication: Anxiety
     Dates: start: 20200512
  6. LYRICA [Concomitant]
     Active Substance: PREGABALIN
     Dates: start: 202008
  7. OXCARBAZEPINE [Concomitant]
     Active Substance: OXCARBAZEPINE
     Dates: start: 2017
  8. UBROGEPANT [Concomitant]
     Active Substance: UBROGEPANT
     Dates: start: 202008
  9. RESTASIS [Concomitant]
     Active Substance: CYCLOSPORINE
     Dosage: 0.05%
     Route: 047
  10. LATANOPROST [Concomitant]
     Active Substance: LATANOPROST
     Dosage: 0.005%
     Route: 047

REACTIONS (6)
  - Hemiparesis [Recovered/Resolved]
  - Dissociation [Recovered/Resolved]
  - Hypoaesthesia oral [Recovered/Resolved]
  - Headache [Recovered/Resolved]
  - Dizziness [Recovered/Resolved]
  - Blood pressure increased [Recovered/Resolved]

NARRATIVE: CASE EVENT DATE: 20201020
